FAERS Safety Report 24844835 (Version 1)
Quarter: 2025Q1

REPORT INFORMATION
  Report Type: Spontaneous
  Country: CA (occurrence: CA)
  Receive Date: 20250115
  Receipt Date: 20250115
  Transmission Date: 20250409
  Serious: Yes (Other)
  Sender: TEVA
  Company Number: CA-TEVA-VS-3286324

PATIENT
  Age: 43 Year
  Sex: Female

DRUGS (9)
  1. CIPROFLOXACIN HYDROCHLORIDE [Suspect]
     Active Substance: CIPROFLOXACIN HYDROCHLORIDE
     Indication: Mycobacterium chelonae infection
     Route: 065
  2. CIPROFLOXACIN HYDROCHLORIDE [Suspect]
     Active Substance: CIPROFLOXACIN HYDROCHLORIDE
     Indication: Mycobacterium chelonae infection
     Route: 048
  3. CIPROFLOXACIN HYDROCHLORIDE [Suspect]
     Active Substance: CIPROFLOXACIN HYDROCHLORIDE
     Indication: Mycobacterium chelonae infection
     Route: 048
  4. CIPROFLOXACIN HYDROCHLORIDE [Suspect]
     Active Substance: CIPROFLOXACIN HYDROCHLORIDE
     Indication: Mycobacterium chelonae infection
     Route: 048
  5. CLARITHROMYCIN [Concomitant]
     Active Substance: CLARITHROMYCIN
     Indication: Mycobacterium chelonae infection
     Route: 048
  6. CLOFAZIMINE [Concomitant]
     Active Substance: CLOFAZIMINE
     Indication: Mycobacterium chelonae infection
     Route: 065
  7. TOBRAMYCIN [Concomitant]
     Active Substance: TOBRAMYCIN
     Indication: Mycobacterium chelonae infection
     Route: 065
  8. TIGECYCLINE [Concomitant]
     Active Substance: TIGECYCLINE
     Indication: Mycobacterium chelonae infection
     Route: 065
  9. AMIKACIN SULFATE [Suspect]
     Active Substance: AMIKACIN SULFATE
     Indication: Mycobacterium chelonae infection
     Route: 051

REACTIONS (5)
  - Nephropathy toxic [Unknown]
  - Drug resistance [Unknown]
  - Antimicrobial susceptibility test intermediate [Unknown]
  - Nausea [Unknown]
  - Vomiting [Unknown]
